FAERS Safety Report 4321287-X (Version None)
Quarter: 2004Q1

REPORT INFORMATION
  Report Type: 
  Country: None (occurrence: None)
  Receive Date: 20040322
  Receipt Date: 20030117
  Transmission Date: 20041129
  Serious: No
  Sender: FDA-Public Use
  Company Number: US-BRISTOL-MYERS SQUIBB COMPANY-12202693

PATIENT
  Age: 20 Year
  Sex: Female

DRUGS (4)
  1. MONISTAT [Suspect]
     Indication: VAGINAL MYCOSIS
     Route: 067
     Dates: start: 20020201, end: 20020201
  2. AMOXICILLIN [Concomitant]
  3. ORTHO CYCLEN-28 [Concomitant]
  4. NAPROSYN [Concomitant]

REACTIONS (5)
  - CHLAMYDIAL INFECTION [None]
  - NAUSEA [None]
  - URINARY TRACT INFECTION [None]
  - VAGINAL PAIN [None]
  - VAGINAL SWELLING [None]
